FAERS Safety Report 8053210-9 (Version None)
Quarter: 2012Q1

REPORT INFORMATION
  Report Type: 
  Country: None (occurrence: None)
  Receive Date: 20120118
  Receipt Date: 20120117
  Transmission Date: 20120608
  Serious: Yes (Other)
  Sender: FDA-Public Use
  Company Number: US-ROCHE-1031100

PATIENT
  Sex: Female

DRUGS (4)
  1. PEGASYS [Suspect]
     Indication: HEPATITIS C
     Route: 058
     Dates: start: 20110801, end: 20120115
  2. RIBAVIRIN [Suspect]
     Dosage: REDUCED DOSE
     Route: 048
     Dates: start: 20111001, end: 20120115
  3. RIBAVIRIN [Suspect]
     Indication: HEPATITIS C
     Dosage: DIVIDED DOSES
     Route: 048
     Dates: start: 20110801, end: 20111001
  4. TELAPREVIR [Suspect]
     Indication: HEPATITIS C
     Dosage: FOR 12 WEEK ONLY
     Dates: start: 20110801, end: 20120115

REACTIONS (6)
  - RASH [None]
  - THYROID DISORDER [None]
  - HAIR TEXTURE ABNORMAL [None]
  - ALOPECIA [None]
  - ANAEMIA [None]
  - PYREXIA [None]
